FAERS Safety Report 5636287-7 (Version None)
Quarter: 2008Q1

REPORT INFORMATION
  Report Type: 
  Country: None (occurrence: None)
  Receive Date: 20080220
  Receipt Date: 20080220
  Transmission Date: 20080703
  Serious: No
  Sender: FDA-Public Use
  Company Number: None

PATIENT
  Sex: Female
  Weight: 74.8435 kg

DRUGS (1)
  1. ZETIA [Suspect]
     Indication: BLOOD CHOLESTEROL INCREASED
     Dosage: 10 MG 1 DAILY 14 MOS PRIOR TO 01-15-2008

REACTIONS (2)
  - NO ADVERSE EVENT [None]
  - PHARMACEUTICAL PRODUCT COMPLAINT [None]
